FAERS Safety Report 5072558-3 (Version None)
Quarter: 2006Q3

REPORT INFORMATION
  Report Type: 
  Country: None (occurrence: None)
  Receive Date: 20060801
  Receipt Date: 20060717
  Transmission Date: 20061208
  Serious: Yes (Hospitalization)
  Sender: FDA-Public Use
  Company Number: DE200607002798

PATIENT
  Age: 82 Year
  Sex: Female

DRUGS (2)
  1. FORTEO [Suspect]
     Indication: OSTEOPOROSIS
     Dosage: SUBCUTANEOUS
     Route: 058
     Dates: start: 20050601
  2. FORTEO [Concomitant]

REACTIONS (1)
  - GASTROINTESTINAL CARCINOMA [None]
